FAERS Safety Report 11439161 (Version 1)
Quarter: 2015Q3

REPORT INFORMATION
  Report Type: Spontaneous
  Country: US (occurrence: US)
  Receive Date: 20150901
  Receipt Date: 20150901
  Transmission Date: 20151125
  Serious: Yes (Other)
  Sender: FDA-Public Use
  Company Number: US-ROCHE-1108816

PATIENT
  Sex: Male

DRUGS (3)
  1. VIIBRYD [Concomitant]
     Active Substance: VILAZODONE HYDROCHLORIDE
     Indication: DEPRESSION
     Route: 065
  2. RIBAVIRIN. [Suspect]
     Active Substance: RIBAVIRIN
     Indication: HEPATITIS C
     Dosage: IN DIVIDED DOSE.FOR 24 WEEK LENGTH OF THERAPY.
     Route: 048
  3. PEGASYS [Suspect]
     Active Substance: PEGINTERFERON ALFA-2A
     Indication: HEPATITIS C
     Route: 058
     Dates: start: 20120725

REACTIONS (7)
  - Suicidal ideation [Unknown]
  - Nausea [Unknown]
  - Vomiting [Unknown]
  - Irritability [Unknown]
  - Diarrhoea [Unknown]
  - Depression [Unknown]
  - Anger [Unknown]
